FAERS Safety Report 19718457 (Version 1)
Quarter: 2021Q3

REPORT INFORMATION
  Report Type: Spontaneous
  Country: US (occurrence: US)
  Receive Date: 20210818
  Receipt Date: 20210818
  Transmission Date: 20211014
  Serious: Yes (Hospitalization, Other)
  Sender: FDA-Public Use
  Company Number: US-BAYER-2021-193843

PATIENT
  Age: 53 Year
  Sex: Male

DRUGS (12)
  1. VANCOMYCIN [Concomitant]
     Active Substance: VANCOMYCIN
  2. ACETYLSALICYLIC ACID [Suspect]
     Active Substance: ASPIRIN
  3. TENOFOVIR [Concomitant]
     Active Substance: TENOFOVIR
     Dosage: 25 MG, QD
  4. CASPOFUNGIN [Concomitant]
     Active Substance: CASPOFUNGIN
     Dosage: 50 MG, QD
     Route: 048
  5. TACROLIMUS. [Concomitant]
     Active Substance: TACROLIMUS
     Dosage: 1 MG, BID
     Route: 048
  6. VALACYCLOVIR [Concomitant]
     Active Substance: VALACYCLOVIR HYDROCHLORIDE
     Dosage: 225 MG, QD
  7. ISAVUCONAZOLE [Concomitant]
     Active Substance: ISAVUCONAZOLE
     Dosage: UNK UNK, QD
     Route: 042
  8. MEROPENEM. [Concomitant]
     Active Substance: MEROPENEM
     Dosage: 500 MG, QD
  9. MYCOPHENOLATEMOFETIL ACCORD [Concomitant]
     Active Substance: MYCOPHENOLATE MOFETIL
     Dosage: 1 G, BID
     Route: 048
  10. FLUCONAZOLE. [Concomitant]
     Active Substance: FLUCONAZOLE
     Dosage: 200 MG, QD
  11. AMPHOTERICIN [Concomitant]
     Active Substance: AMPHOTERICIN B
     Dosage: UNK UNK, QD
     Route: 042
  12. PREDNISONE. [Concomitant]
     Active Substance: PREDNISONE
     Dosage: 80 MG, QD

REACTIONS (1)
  - Retinal haemorrhage [None]
